FAERS Safety Report 18967616 (Version 1)
Quarter: 2021Q1

REPORT INFORMATION
  Report Type: Spontaneous
  Country: JP (occurrence: JP)
  Receive Date: 20210304
  Receipt Date: 20210304
  Transmission Date: 20210420
  Serious: Yes (Other)
  Sender: FDA-Public Use
  Company Number: JP-STRIDES ARCOLAB LIMITED-2021SP002590

PATIENT
  Age: 44 Year
  Sex: Female

DRUGS (2)
  1. HYDROCORTISONE. [Suspect]
     Active Substance: HYDROCORTISONE
     Indication: SUPPLEMENTATION THERAPY
     Dosage: 30 MILLIGRAM, PER DAY
     Route: 048
  2. HYDROCORTISONE. [Suspect]
     Active Substance: HYDROCORTISONE
     Dosage: 20 MILLIGRAM, PER DAY
     Route: 065

REACTIONS (3)
  - Inappropriate thyroid stimulating hormone secretion [Recovered/Resolved]
  - Steroid withdrawal syndrome [Unknown]
  - Basedow^s disease [Recovered/Resolved]
